FAERS Safety Report 6039932-X (Version None)
Quarter: 2009Q1

REPORT INFORMATION
  Report Type: 
  Country: None (occurrence: None)
  Receive Date: 20090116
  Receipt Date: 20070511
  Transmission Date: 20090719
  Serious: No
  Sender: FDA-Public Use
  Company Number: US-BRISTOL-MYERS SQUIBB COMPANY-13650213

PATIENT
  Age: 57 Year
  Sex: Female
  Weight: 69 kg

DRUGS (7)
  1. ABILIFY [Suspect]
     Indication: BIPOLAR DISORDER
     Route: 048
     Dates: start: 20060101
  2. ABILIFY [Suspect]
     Indication: DISSOCIATIVE DISORDER
     Route: 048
     Dates: start: 20060101
  3. ABILIFY [Suspect]
     Indication: POST-TRAUMATIC STRESS DISORDER
     Route: 048
     Dates: start: 20060101
  4. LEXAPRO [Concomitant]
  5. TEGRETOL [Concomitant]
  6. ATIVAN [Concomitant]
  7. VITAMIN D [Concomitant]

REACTIONS (7)
  - ARTHRALGIA [None]
  - ARTHRITIS [None]
  - BALANCE DISORDER [None]
  - INCREASED APPETITE [None]
  - JOINT STIFFNESS [None]
  - MUSCULOSKELETAL STIFFNESS [None]
  - SENSATION OF HEAVINESS [None]
